FAERS Safety Report 7629490-8 (Version None)
Quarter: 2011Q3

REPORT INFORMATION
  Report Type: 
  Country: None (occurrence: None)
  Receive Date: 20110722
  Receipt Date: 20110713
  Transmission Date: 20111222
  Serious: Yes (Other)
  Sender: FDA-Public Use
  Company Number: ES-ACTELION-A-CH2011-48017

PATIENT
  Sex: Male

DRUGS (3)
  1. ZAVESCA [Suspect]
     Dosage: 100 MG, TID
     Route: 048
     Dates: start: 20110324
  2. ZAVESCA [Suspect]
     Indication: GAUCHER'S DISEASE
     Dosage: 100 MG, TID
     Route: 048
     Dates: start: 20100422, end: 20110315
  3. OMEPRAZOLE [Concomitant]

REACTIONS (3)
  - AGGRESSION [None]
  - DISORIENTATION [None]
  - DEMENTIA [None]
